FAERS Safety Report 8683114 (Version 3)
Quarter: 2013Q1

REPORT INFORMATION
  Report Type: Spontaneous
  Country: JP (occurrence: JP)
  Receive Date: 20120725
  Receipt Date: 20130208
  Transmission Date: 20140127
  Serious: Yes (Other)
  Sender: FDA-Public Use
  Company Number: PHHY2012JP062154

PATIENT
  Age: 59 Year
  Sex: Female
  Weight: 60 kg

DRUGS (2)
  1. ZOMETA [Suspect]
     Indication: METASTASES TO BONE
     Dosage: 40 MG, QID
     Route: 042
     Dates: start: 20070829, end: 20120510
  2. DENOSUMAB [Suspect]
     Indication: METASTASES TO BONE
     Dosage: 120 MG, QID
     Route: 058
     Dates: start: 20120531

REACTIONS (4)
  - Osteonecrosis of jaw [Not Recovered/Not Resolved]
  - Bone marrow disorder [Unknown]
  - Exposed bone in jaw [Not Recovered/Not Resolved]
  - Tongue disorder [Unknown]
